FAERS Safety Report 18702162 (Version 1)
Quarter: 2021Q1

REPORT INFORMATION
  Report Type: Spontaneous
  Country: US (occurrence: US)
  Receive Date: 20210105
  Receipt Date: 20210105
  Transmission Date: 20210419
  Serious: Yes (Hospitalization)
  Sender: FDA-Public Use
  Company Number: US-STRIDES ARCOLAB LIMITED-2020SP016615

PATIENT
  Age: 62 Year
  Sex: Male

DRUGS (1)
  1. MELOXICAM. [Suspect]
     Active Substance: MELOXICAM
     Indication: BACK PAIN
     Dosage: UNK, DAILY OVER THE PAST 6 MONTHS
     Route: 065

REACTIONS (4)
  - Gastrointestinal disorder [Unknown]
  - Barrett^s oesophagus [Unknown]
  - Gastric mucosa erythema [Unknown]
  - Off label use [Unknown]
